FAERS Safety Report 6063497-X (Version None)
Quarter: 2009Q1

REPORT INFORMATION
  Report Type: 
  Country: None (occurrence: None)
  Receive Date: 20090203
  Receipt Date: 20090114
  Transmission Date: 20090719
  Serious: No
  Sender: FDA-Public Use
  Company Number: US-B.I. PHARMACEUTICALS,INC./RIDGEFIELD-2009-BP-00490BP

PATIENT
  Sex: Male

DRUGS (3)
  1. NEVILAST [Suspect]
     Indication: HIV INFECTION
     Dosage: 60MG
     Route: 048
  2. EPIVIR [Concomitant]
     Indication: HIV ANTIBODY
  3. STAVUDINE [Concomitant]
     Indication: HIV INFECTION

REACTIONS (2)
  - HYPOTENSION [None]
  - OEDEMA PERIPHERAL [None]
